FAERS Safety Report 13871557 (Version 3)
Quarter: 2017Q4

REPORT INFORMATION
  Report Type: Report from Study
  Country: CN (occurrence: CN)
  Receive Date: 20170816
  Receipt Date: 20171017
  Transmission Date: 20180320
  Serious: Yes (Hospitalization)
  Sender: FDA-Public Use
  Company Number: CN-ROCHE-1975391

PATIENT
  Age: 62 Year
  Sex: Female
  Weight: 49 kg

DRUGS (20)
  1. ETOPOSIDE. [Suspect]
     Active Substance: ETOPOSIDE
     Indication: SMALL CELL LUNG CANCER EXTENSIVE STAGE
     Dosage: MOST RECENT PRIOR TO EVENT ONSET ON 14/JUL/2017 AT 16:01 (140 MG)?100 MG/M2 ON DAYS 1, 2, AND 3 OF E
     Route: 042
     Dates: start: 20170714
  2. HIRUDOID (CHINA) [Concomitant]
     Indication: PHLEBITIS
     Route: 042
     Dates: start: 20170813
  3. ONDANSETRON HYDROCHLORIDE. [Concomitant]
     Active Substance: ONDANSETRON HYDROCHLORIDE
     Indication: PROPHYLAXIS OF NAUSEA AND VOMITING
     Route: 042
     Dates: start: 20170714, end: 20170716
  4. MEGESTROL ACETATE. [Concomitant]
     Active Substance: MEGESTROL ACETATE
     Dosage: TO IMPROVE THE APPETITE
     Route: 048
     Dates: start: 20170717
  5. LANSOPRAZOLE. [Concomitant]
     Active Substance: LANSOPRAZOLE
     Dosage: TO PROTECT STOMACH
     Route: 042
     Dates: start: 20170714, end: 20170717
  6. LEUCOGEN (CHINA) [Concomitant]
     Route: 048
     Dates: start: 20170727
  7. GLUTATHIONE [Concomitant]
     Active Substance: GLUTATHIONE
     Route: 042
     Dates: start: 20170804, end: 20170817
  8. POTASSIUM CHLORIDE. [Concomitant]
     Active Substance: POTASSIUM CHLORIDE
     Route: 042
     Dates: start: 20170809, end: 20170817
  9. CARBOPLATIN. [Suspect]
     Active Substance: CARBOPLATIN
     Indication: SMALL CELL LUNG CANCER EXTENSIVE STAGE
     Dosage: MOST RECENT DOSE PRIOR TO EVENT ONSET ON 14/JUL/2017 AT 13:40 (455 MG)?AUC OF 5 MG/ML/MIN WILL BE AD
     Route: 042
     Dates: start: 20170714
  10. STRUCTOLIPID [Concomitant]
     Active Substance: UNSPECIFIED INGREDIENT
     Route: 042
     Dates: start: 20170809, end: 20170817
  11. ATEZOLIZUMAB. [Suspect]
     Active Substance: ATEZOLIZUMAB
     Indication: SMALL CELL LUNG CANCER EXTENSIVE STAGE
     Dosage: MOST RECENT DOSE ON 14/JUL/2017 AT 10:26
     Route: 042
     Dates: start: 20170714
  12. METOCLOPRAMIDE DIHYDROCHLORIDE [Concomitant]
     Dosage: PREVENTIVE CARE STOMACH AND ANTI-NAUSEA
     Route: 030
     Dates: start: 20170714, end: 20170714
  13. PALONOSETRON HYDROCHLORIDE. [Concomitant]
     Active Substance: PALONOSETRON HYDROCHLORIDE
     Indication: PROPHYLAXIS OF NAUSEA AND VOMITING
     Route: 042
     Dates: start: 20170717, end: 20170717
  14. BATILOL [Concomitant]
     Route: 048
     Dates: start: 20170726
  15. COMPOUND GLYCYRRHIZIN (UNK INGREDIENTS) [Concomitant]
     Route: 042
     Dates: start: 20170807, end: 20170815
  16. VITAMIN B6 [Concomitant]
     Active Substance: PYRIDOXINE HYDROCHLORIDE
     Route: 042
     Dates: start: 20170809, end: 20170817
  17. EMEND [Concomitant]
     Active Substance: APREPITANT
     Dosage: PREVENTIVE ANTI-NAUSEA
     Route: 048
     Dates: start: 20170714, end: 20170715
  18. VITAMIN C [Concomitant]
     Active Substance: ASCORBIC ACID
     Dosage: AS MULTI-VITAMIN?AS INTRANASAL
     Route: 045
     Dates: start: 20170717, end: 20170717
  19. VITAMIN C [Concomitant]
     Active Substance: ASCORBIC ACID
     Dosage: VITAMIN SUPPLEMENTATION
     Route: 042
     Dates: start: 20170809, end: 20170817
  20. LANSOPRAZOLE. [Concomitant]
     Active Substance: LANSOPRAZOLE
     Dosage: TO PROTECT STOMACH
     Route: 042
     Dates: start: 20170809, end: 20170817

REACTIONS (2)
  - C-reactive protein increased [Recovered/Resolved]
  - Platelet count decreased [Recovered/Resolved]

NARRATIVE: CASE EVENT DATE: 20170801
